FAERS Safety Report 4653370-3 (Version None)
Quarter: 2005Q2

REPORT INFORMATION
  Report Type: 
  Country: None (occurrence: None)
  Receive Date: 20050503
  Receipt Date: 20050420
  Transmission Date: 20051028
  Serious: Yes (Other)
  Sender: FDA-Public Use
  Company Number: SUS1-2005-00341

PATIENT
  Age: 36 Year
  Sex: Female

DRUGS (2)
  1. ADDERALL 10 [Suspect]
     Dosage: 140 MG DAILY, ORAL
     Route: 048
  2. TRAZODONE HCL [Concomitant]

REACTIONS (6)
  - ANXIETY [None]
  - EXOPHTHALMOS [None]
  - PRESCRIBED OVERDOSE [None]
  - RASH [None]
  - SWOLLEN TONGUE [None]
  - THROAT TIGHTNESS [None]
